FAERS Safety Report 19645302 (Version 1)
Quarter: 2021Q3

REPORT INFORMATION
  Report Type: Spontaneous
  Country: CN (occurrence: CN)
  Receive Date: 20210802
  Receipt Date: 20210802
  Transmission Date: 20211014
  Serious: Yes (Other)
  Sender: FDA-Public Use
  Company Number: CN-ROCHE-2878758

PATIENT
  Age: 54 Year
  Sex: Female

DRUGS (7)
  1. HERCEPTIN [Suspect]
     Active Substance: TRASTUZUMAB
     Route: 041
     Dates: end: 202101
  2. DOCETAXEL. [Concomitant]
     Active Substance: DOCETAXEL
     Indication: INVASIVE BREAST CARCINOMA
  3. CYCLOPHOSPHAMIDE. [Concomitant]
     Active Substance: CYCLOPHOSPHAMIDE
     Indication: INVASIVE BREAST CARCINOMA
  4. PERJETA [Suspect]
     Active Substance: PERTUZUMAB
     Route: 041
     Dates: end: 202101
  5. HERCEPTIN [Suspect]
     Active Substance: TRASTUZUMAB
     Indication: INVASIVE BREAST CARCINOMA
     Dosage: 4 CYCLES
     Route: 041
  6. EPIRUBICIN [Concomitant]
     Active Substance: EPIRUBICIN
     Indication: INVASIVE BREAST CARCINOMA
  7. PERJETA [Suspect]
     Active Substance: PERTUZUMAB
     Indication: INVASIVE BREAST CARCINOMA
     Route: 041

REACTIONS (2)
  - Myelosuppression [Unknown]
  - Hepatic function abnormal [Unknown]
